FAERS Safety Report 17186341 (Version 1)
Quarter: 2019Q4

REPORT INFORMATION
  Report Type: Spontaneous
  Country: CH (occurrence: CH)
  Receive Date: 20191220
  Receipt Date: 20191220
  Transmission Date: 20200122
  Serious: Yes (Life-Threatening, Hospitalization)
  Sender: FDA-Public Use
  Company Number: NVSC2019CH073092

PATIENT
  Age: 61 Year
  Sex: Female

DRUGS (1)
  1. CIPROFLOXACINE SANDOZ 500 MG FILMOMHULDE TABLETTEN [Suspect]
     Active Substance: CIPROFLOXACIN HYDROCHLORIDE
     Indication: GASTROENTERITIS ESCHERICHIA COLI
     Dosage: 500 MG, BID
     Route: 048
     Dates: start: 20170831, end: 20170904

REACTIONS (1)
  - Aortic dissection [Recovered/Resolved with Sequelae]

NARRATIVE: CASE EVENT DATE: 20170914
